FAERS Safety Report 7862749-8 (Version None)
Quarter: 2011Q4

REPORT INFORMATION
  Report Type: 
  Country: None (occurrence: None)
  Receive Date: 20111027
  Receipt Date: 20101112
  Transmission Date: 20120403
  Serious: No
  Sender: FDA-Public Use
  Company Number: US-AMGEN-USASP2010005134

PATIENT
  Sex: Female

DRUGS (1)
  1. ENBREL [Suspect]
     Indication: RHEUMATOID ARTHRITIS
     Dates: start: 20001224

REACTIONS (4)
  - NASAL CONGESTION [None]
  - RESPIRATORY TRACT CONGESTION [None]
  - PYREXIA [None]
  - COUGH [None]
